FAERS Safety Report 10229751 (Version 1)
Quarter: 2014Q2

REPORT INFORMATION
  Report Type: Spontaneous
  Country: FR (occurrence: FR)
  Receive Date: 20140611
  Receipt Date: 20140611
  Transmission Date: 20141212
  Serious: Yes (Other)
  Sender: FDA-Public Use
  Company Number: PHHY2014FR070162

PATIENT
  Age: 28 Year
  Sex: Female

DRUGS (6)
  1. GILENYA [Suspect]
     Dates: start: 201309
  2. NEURONTIN [Concomitant]
  3. MANTADIX [Concomitant]
  4. UROREC [Concomitant]
  5. LAROXYL [Concomitant]
  6. CYMBALTA [Concomitant]
     Dosage: UNK

REACTIONS (2)
  - Eosinophil count increased [Unknown]
  - Fatigue [Unknown]
